FAERS Safety Report 13989697 (Version 1)
Quarter: 2017Q3

REPORT INFORMATION
  Report Type: Spontaneous
  Country: FR (occurrence: FR)
  Receive Date: 20170920
  Receipt Date: 20170920
  Transmission Date: 20171128
  Serious: No
  Sender: FDA-Public Use
  Company Number: FR-B. BRAUN MEDICAL INC.-2026937

PATIENT
  Age: 72 Year
  Sex: Male

DRUGS (1)
  1. MANNITOL. [Suspect]
     Active Substance: MANNITOL
     Route: 050

REACTIONS (1)
  - Penile oedema [Recovered/Resolved]
